FAERS Safety Report 10055875 (Version 1)
Quarter: 2014Q2

REPORT INFORMATION
  Report Type: Spontaneous
  Country: US (occurrence: None)
  Receive Date: 20140402
  Receipt Date: 20140402
  Transmission Date: 20141212
  Serious: Yes (Other)
  Sender: FDA-Public Use
  Company Number: None

PATIENT
  Age: 61 Year
  Sex: Female

DRUGS (1)
  1. OMEPRAZOLE [Suspect]
     Indication: GASTROOESOPHAGEAL REFLUX DISEASE
     Dosage: 1, QD, ORAL
     Route: 048
     Dates: start: 20140330, end: 20140401

REACTIONS (4)
  - Product quality issue [None]
  - Drug ineffective [None]
  - Vomiting [None]
  - Diarrhoea [None]
